FAERS Safety Report 8188021-7 (Version None)
Quarter: 2012Q1

REPORT INFORMATION
  Report Type: 
  Country: None (occurrence: None)
  Receive Date: 20120306
  Receipt Date: 20120221
  Transmission Date: 20120608
  Serious: Yes (Death, Other)
  Sender: FDA-Public Use
  Company Number: CZ-WATSON-2012-03402

PATIENT
  Age: 54 Year
  Sex: Female

DRUGS (6)
  1. GEMCITABINE [Suspect]
     Indication: OVARIAN CANCER
     Dosage: 1000 MG/M2, UNKNOWN
     Route: 065
  2. CISPLATIN [Suspect]
     Indication: OVARIAN CANCER
  3. CARBOPLATIN [Suspect]
     Indication: OVARIAN CANCER
  4. PACLITAXEL [Suspect]
     Indication: BREAST CANCER
  5. DOXORUBICIN HCL [Suspect]
     Indication: BREAST CANCER
  6. PACLITAXEL [Suspect]
     Indication: OVARIAN CANCER

REACTIONS (6)
  - ANAEMIA [None]
  - NECROTISING COLITIS [None]
  - PNEUMONIA [None]
  - MYELODYSPLASTIC SYNDROME [None]
  - THROMBOCYTOPENIA [None]
  - LEUKOPENIA [None]
